FAERS Safety Report 4576436-5 (Version None)
Quarter: 2005Q1

REPORT INFORMATION
  Report Type: 
  Country: None (occurrence: None)
  Receive Date: 20050207
  Receipt Date: 20041202
  Transmission Date: 20050727
  Serious: Yes (Other)
  Sender: FDA-Public Use
  Company Number: 2005018950

PATIENT
  Age: 54 Year
  Sex: Male

DRUGS (1)
  1. CELEBRA (CELECOXIB) [Suspect]
     Indication: PREMEDICATION
     Dosage: 200 MG (200 MG, ONCE), ORAL
     Route: 048
     Dates: start: 20041117, end: 20041117

REACTIONS (2)
  - ANAESTHETIC COMPLICATION [None]
  - BLOOD PRESSURE DECREASED [None]
